FAERS Safety Report 15030089 (Version 1)
Quarter: 2018Q2

REPORT INFORMATION
  Report Type: Spontaneous
  Country: US (occurrence: US)
  Receive Date: 20180619
  Receipt Date: 20180619
  Transmission Date: 20180711
  Serious: No
  Sender: FDA-Public Use
  Company Number: US-BAYER-2018-107258

PATIENT
  Age: 6 Year
  Sex: Female

DRUGS (2)
  1. MIRALAX [Suspect]
     Active Substance: POLYETHYLENE GLYCOL 3350
     Indication: CONSTIPATION
     Dosage: FULL CAPFUL, DISSOLVED IN WATER EVERY EVENING
     Dates: start: 201702, end: 201805
  2. MIRALAX [Suspect]
     Active Substance: POLYETHYLENE GLYCOL 3350
     Indication: CONSTIPATION
     Dosage: UNK

REACTIONS (4)
  - Depressed mood [Recovered/Resolved]
  - Anger [None]
  - Aggression [None]
  - Aggression [Recovered/Resolved]

NARRATIVE: CASE EVENT DATE: 201803
